FAERS Safety Report 17820044 (Version 1)
Quarter: 2020Q2

REPORT INFORMATION
  Report Type: Report from Study
  Country: IT (occurrence: IT)
  Receive Date: 20200525
  Receipt Date: 20200525
  Transmission Date: 20200714
  Serious: Yes (Hospitalization, Other)
  Sender: FDA-Public Use
  Company Number: IT-AUROBINDO-AUR-APL-2020-025174

PATIENT
  Age: 83 Year
  Sex: Female

DRUGS (3)
  1. CEFTOLOZANE [Suspect]
     Active Substance: CEFTOLOZANE
     Indication: SKIN BACTERIAL INFECTION
     Dosage: 250 MILLIGRAM, 3 TIMES A DAY
     Route: 042
  2. MEROPENEM. [Suspect]
     Active Substance: MEROPENEM
     Indication: SKIN BACTERIAL INFECTION
     Dosage: 1 GRAM, 3 TIMES A DAY
     Route: 065
  3. TAZOBACTAM [Suspect]
     Active Substance: TAZOBACTAM
     Indication: SKIN BACTERIAL INFECTION
     Dosage: 125 MILLIGRAM, 3 TIMES A DAY
     Route: 042

REACTIONS (1)
  - Drug ineffective [Unknown]
